FAERS Safety Report 7610226-1 (Version None)
Quarter: 2011Q3

REPORT INFORMATION
  Report Type: 
  Country: None (occurrence: None)
  Receive Date: 20110706
  Receipt Date: 20110624
  Transmission Date: 20111222
  Serious: Yes (Hospitalization)
  Sender: FDA-Public Use
  Company Number: 2011SP029943

PATIENT
  Age: 82 Year
  Sex: Male

DRUGS (7)
  1. MIRTAZAPINE [Suspect]
     Indication: PRODUCT USED FOR UNKNOWN INDICATION
     Dosage: 15 MG;QD;PO
     Route: 048
     Dates: end: 20091207
  2. AMARYL [Concomitant]
  3. ORDAZ (NORDAZEPAM) [Suspect]
     Indication: PRODUCT USED FOR UNKNOWN INDICATION
     Dosage: 15 MG;QD;PO
     Route: 048
     Dates: end: 20091207
  4. AMLODIPINE BESYLATE [Concomitant]
  5. FOSINOPRIL SODIUM [Concomitant]
  6. PRAVASTATIN SODIUM [Concomitant]
  7. MEPRONIZINE (MEPRONIZINE /00789201/) [Suspect]
     Indication: PRODUCT USED FOR UNKNOWN INDICATION
     Dates: start: 20091207, end: 20091207

REACTIONS (6)
  - GENERAL PHYSICAL HEALTH DETERIORATION [None]
  - SOMNOLENCE [None]
  - BLOOD CREATINE PHOSPHOKINASE INCREASED [None]
  - CONFUSIONAL STATE [None]
  - CONTRAINDICATION TO MEDICAL TREATMENT [None]
  - INAPPROPRIATE ANTIDIURETIC HORMONE SECRETION [None]
